FAERS Safety Report 19473320 (Version 15)
Quarter: 2024Q4

REPORT INFORMATION
  Report Type: Report from Study
  Country: BR (occurrence: BR)
  Receive Date: 20210629
  Receipt Date: 20241017
  Transmission Date: 20250115
  Serious: Yes (Hospitalization, Other)
  Sender: TAKEDA
  Company Number: BR-TAKEDA-BR202014102

PATIENT
  Sex: Male
  Weight: 40 kg

DRUGS (16)
  1. IDURSULFASE [Suspect]
     Active Substance: IDURSULFASE
     Indication: Mucopolysaccharidosis II
     Dosage: UNK UNK, 1/WEEK
     Route: 042
     Dates: start: 20140606
  2. IDURSULFASE [Suspect]
     Active Substance: IDURSULFASE
     Dosage: UNK UNK, 1/WEEK
     Route: 042
     Dates: start: 2014
  3. IDURSULFASE [Suspect]
     Active Substance: IDURSULFASE
     Dosage: UNK
     Route: 065
     Dates: start: 20220912
  4. IDURSULFASE [Suspect]
     Active Substance: IDURSULFASE
     Dosage: UNK UNK, 1/WEEK
     Route: 042
     Dates: start: 20230821
  5. IDURSULFASE [Suspect]
     Active Substance: IDURSULFASE
     Dosage: UNK
     Route: 065
  6. IDURSULFASE [Suspect]
     Active Substance: IDURSULFASE
     Dosage: UNK
     Route: 042
  7. IDURSULFASE [Suspect]
     Active Substance: IDURSULFASE
     Dosage: UNK UNK, 1/WEEK
     Route: 042
  8. IDURSULFASE [Suspect]
     Active Substance: IDURSULFASE
     Dosage: UNK UNK, 1/WEEK
     Route: 042
  9. IDURSULFASE [Suspect]
     Active Substance: IDURSULFASE
     Dosage: UNK
     Route: 042
  10. IDURSULFASE [Suspect]
     Active Substance: IDURSULFASE
     Dosage: UNK UNK, 1/WEEK
     Route: 042
  11. IDURSULFASE [Suspect]
     Active Substance: IDURSULFASE
     Dosage: UNK UNK, 1/WEEK
     Route: 065
  12. IDURSULFASE [Suspect]
     Active Substance: IDURSULFASE
     Dosage: UNK UNK, 1/WEEK
     Route: 042
  13. MELATONIN [Concomitant]
     Active Substance: MELATONIN
     Indication: Insomnia
     Dosage: UNK
     Route: 065
     Dates: start: 202109
  14. ANNITA [Concomitant]
     Active Substance: NITAZOXANIDE
     Indication: Antiallergic therapy
     Dosage: UNK
     Route: 065
  15. ANNITA [Concomitant]
     Active Substance: NITAZOXANIDE
     Indication: Premedication
  16. FEXOFENADINE [Concomitant]
     Active Substance: FEXOFENADINE HYDROCHLORIDE
     Dosage: 60 MILLIGRAM
     Route: 048

REACTIONS (24)
  - Cardiac valve disease [Unknown]
  - Hydrocephalus [Unknown]
  - Agitation [Unknown]
  - Melaena [Unknown]
  - Respiratory disorder [Not Recovered/Not Resolved]
  - Pain [Unknown]
  - Inappropriate schedule of product administration [Recovered/Resolved]
  - Infusion site erythema [Recovered/Resolved]
  - Muscular weakness [Not Recovered/Not Resolved]
  - Application site hypersensitivity [Unknown]
  - Fall [Not Recovered/Not Resolved]
  - Gait disturbance [Not Recovered/Not Resolved]
  - Hyperaemia [Recovered/Resolved]
  - Sleep disorder [Unknown]
  - Poor venous access [Unknown]
  - Incorrect dose administered [Unknown]
  - Product dose omission issue [Unknown]
  - General physical health deterioration [Unknown]
  - Increased upper airway secretion [Unknown]
  - Fatigue [Unknown]
  - Hypersensitivity [Recovered/Resolved]
  - Vomiting [Unknown]
  - Cough [Unknown]
  - Pyrexia [Recovering/Resolving]

NARRATIVE: CASE EVENT DATE: 20190101
